FAERS Safety Report 14855850 (Version 1)
Quarter: 2018Q2

REPORT INFORMATION
  Report Type: Spontaneous
  Country: US (occurrence: US)
  Receive Date: 20180507
  Receipt Date: 20180507
  Transmission Date: 20180711
  Serious: Yes (Other)
  Sender: FDA-Public Use
  Company Number: US-PFIZER INC-2018185509

PATIENT
  Age: 40 Year
  Sex: Female

DRUGS (2)
  1. TAXOTERE [Suspect]
     Active Substance: DOCETAXEL
     Indication: INVASIVE DUCTAL BREAST CARCINOMA
     Dosage: UNK UNK, CYCLIC (EVERY 4 WEEKS FOR 6 CYCLES, COMBINED WITH 2 OTHER CHEMOTHERAPY DRUGS)
     Dates: start: 200910, end: 201002
  2. DOCETAXEL. [Suspect]
     Active Substance: DOCETAXEL
     Indication: INVASIVE DUCTAL BREAST CARCINOMA
     Dosage: UNK UNK, CYCLIC (EVERY 4 WEEKS FOR 6 CYCLES, COMBINED WITH 2 OTHER CHEMOTHERAPY DRUGS)
     Dates: start: 200910, end: 201002

REACTIONS (9)
  - Hair colour changes [Unknown]
  - Amnesia [Unknown]
  - Hair disorder [Unknown]
  - Madarosis [Unknown]
  - Depression [Unknown]
  - Carpal tunnel syndrome [Unknown]
  - Alopecia [Unknown]
  - Hair texture abnormal [Unknown]
  - Anxiety [Unknown]

NARRATIVE: CASE EVENT DATE: 200912
